FAERS Safety Report 6154912-1 (Version None)
Quarter: 2009Q2

REPORT INFORMATION
  Report Type: 
  Country: None (occurrence: None)
  Receive Date: 20090414
  Receipt Date: 20090407
  Transmission Date: 20091009
  Serious: Yes (Hospitalization)
  Sender: FDA-Public Use
  Company Number: FR-ABBOTT-09P-056-0567488-00

PATIENT
  Sex: Female

DRUGS (3)
  1. ENANTONE LP 3.75 MG PREP INJ [Suspect]
     Indication: UTERINE LEIOMYOMA
     Route: 030
     Dates: start: 20081001, end: 20081201
  2. LUTERAN [Concomitant]
     Indication: DRUG USE FOR UNKNOWN INDICATION
     Route: 048
     Dates: end: 20090217
  3. SURGESTONE [Concomitant]
     Indication: DRUG USE FOR UNKNOWN INDICATION
     Dates: end: 20090217

REACTIONS (7)
  - ACUTE GENERALISED EXANTHEMATOUS PUSTULOSIS [None]
  - FACE OEDEMA [None]
  - HEADACHE [None]
  - INJECTION SITE ABSCESS [None]
  - ODYNOPHAGIA [None]
  - RASH [None]
  - TENSION [None]
